FAERS Safety Report 4830540-2 (Version None)
Quarter: 2005Q4

REPORT INFORMATION
  Report Type: 
  Country: None (occurrence: None)
  Receive Date: 20051117
  Receipt Date: 20050725
  Transmission Date: 20060501
  Serious: Yes (Other)
  Sender: FDA-Public Use
  Company Number: PHEH2005US08242

PATIENT
  Age: 13 Year
  Sex: Male

DRUGS (2)
  1. ADDERALL XR 10 [Concomitant]
  2. TRILEPTAL [Suspect]
     Dosage: 1200 MG, BID
     Dates: start: 20040101

REACTIONS (6)
  - ALANINE AMINOTRANSFERASE INCREASED [None]
  - ASPARTATE AMINOTRANSFERASE INCREASED [None]
  - BLOOD AMYLASE INCREASED [None]
  - CHOLECYSTITIS [None]
  - GALLBLADDER OPERATION [None]
  - LIPASE INCREASED [None]
